FAERS Safety Report 6908940-6 (Version None)
Quarter: 2010Q3

REPORT INFORMATION
  Report Type: 
  Country: None (occurrence: None)
  Receive Date: 20100805
  Receipt Date: 20100726
  Transmission Date: 20110219
  Serious: Yes (Other)
  Sender: FDA-Public Use
  Company Number: GXKR2010TN07677

PATIENT
  Age: 35 Year
  Sex: Male

DRUGS (2)
  1. RIBAVIRIN (NGX) [Suspect]
     Indication: HEPATITIS C
     Route: 065
  2. INTERFERON ALFA-2A [Suspect]
     Indication: HEPATITIS C
     Route: 065

REACTIONS (6)
  - CHOROIDITIS [None]
  - MENINGISM [None]
  - RETINAL DETACHMENT [None]
  - UVEITIS [None]
  - VISUAL ACUITY REDUCED [None]
  - VOGT-KOYANAGI-HARADA SYNDROME [None]
